FAERS Safety Report 7441800-3 (Version None)
Quarter: 2011Q2

REPORT INFORMATION
  Report Type: 
  Country: None (occurrence: None)
  Receive Date: 20110428
  Receipt Date: 20110413
  Transmission Date: 20111010
  Serious: Yes (Hospitalization)
  Sender: FDA-Public Use
  Company Number: RU-US-EMD SERONO, INC.-7038690

PATIENT
  Sex: Male
  Weight: 82 kg

DRUGS (16)
  1. REBIF [Suspect]
     Dates: start: 20100224, end: 20100320
  2. REBIF [Suspect]
     Dates: start: 20100522, end: 20100616
  3. REBIF [Suspect]
     Indication: MULTIPLE SCLEROSIS
     Dates: start: 20100128, end: 20100208
  4. REBIF [Suspect]
     Dates: start: 20101006, end: 20101030
  5. REBIF [Suspect]
     Dates: start: 20101111, end: 20101206
  6. REBIF [Suspect]
     Dates: start: 20101208, end: 20110102
  7. REBIF [Suspect]
     Dates: start: 20100323, end: 20100416
  8. REBIF [Suspect]
     Dates: start: 20100420, end: 20100520
  9. REBIF [Suspect]
     Dates: start: 20100715, end: 20100808
  10. REBIF [Suspect]
     Dates: start: 20100908, end: 20101003
  11. PLACEBO [Suspect]
     Route: 048
     Dates: start: 20091221, end: 20091225
  12. REBIF [Suspect]
     Dates: start: 20100211, end: 20100223
  13. REBIF [Suspect]
     Dates: start: 20100618, end: 20100713
  14. REBIF [Suspect]
     Dates: start: 20100811, end: 20100905
  15. REBIF [Suspect]
     Dates: start: 20110104
  16. PLACEBO [Suspect]
     Indication: MULTIPLE SCLEROSIS
     Route: 048
     Dates: start: 20091116, end: 20091120

REACTIONS (1)
  - PSORIASIS [None]
